FAERS Safety Report 19928737 (Version 1)
Quarter: 2021Q4

REPORT INFORMATION
  Report Type: Spontaneous
  Country: US (occurrence: US)
  Receive Date: 20211007
  Receipt Date: 20211007
  Transmission Date: 20220304
  Serious: Yes (Death, Hospitalization, Other)
  Sender: FDA-Public Use
  Company Number: US-BAYER-2021A223334

PATIENT
  Age: 81 Year
  Sex: Male
  Weight: 97.5 kg

DRUGS (2)
  1. ASPIRIN [Suspect]
     Active Substance: ASPIRIN
     Indication: Acute myocardial infarction
     Dosage: UNK
     Dates: start: 20060101
  2. CLOPIDOGREL [Suspect]
     Active Substance: CLOPIDOGREL BISULFATE
     Indication: Acute myocardial infarction
     Dosage: UNK
     Dates: start: 20210722

REACTIONS (2)
  - Subdural haematoma [Fatal]
  - Labelled drug-drug interaction issue [None]

NARRATIVE: CASE EVENT DATE: 20210818
